FAERS Safety Report 9989357 (Version 1)
Quarter: 2014Q1

REPORT INFORMATION
  Report Type: Spontaneous
  Country: US (occurrence: None)
  Receive Date: 20140310
  Receipt Date: 20140310
  Transmission Date: 20141002
  Serious: Yes (Life-Threatening, Other)
  Sender: FDA-Public Use
  Company Number: None

PATIENT
  Age: 62 Year
  Sex: Female
  Weight: 89.36 kg

DRUGS (1)
  1. LACTOBACILLUS ACIDOPHILUS [Suspect]
     Indication: THYROID DISORDER
     Dates: start: 20140226, end: 20140226

REACTIONS (4)
  - Anaphylactic reaction [None]
  - Product compounding quality issue [None]
  - Chemical poisoning [None]
  - Product contamination [None]
